FAERS Safety Report 24172387 (Version 1)
Quarter: 2024Q3

REPORT INFORMATION
  Report Type: Report from Study
  Country: US (occurrence: US)
  Receive Date: 20240805
  Receipt Date: 20240805
  Transmission Date: 20241016
  Serious: Yes (Other)
  Sender: UCB
  Company Number: US-UCBSA-2024038792

PATIENT
  Age: 41 Year
  Sex: Female

DRUGS (1)
  1. CERTOLIZUMAB PEGOL [Suspect]
     Active Substance: CERTOLIZUMAB PEGOL
     Indication: Psoriasis
     Dosage: 320 MILLIGRAM, EV 2 WEEKS(QOW)

REACTIONS (2)
  - Sjogren^s syndrome [Unknown]
  - Product use issue [Unknown]

NARRATIVE: CASE EVENT DATE: 20240703
